FAERS Safety Report 15516808 (Version 1)
Quarter: 2018Q4

REPORT INFORMATION
  Report Type: Spontaneous
  Country: FR (occurrence: FR)
  Receive Date: 20181017
  Receipt Date: 20181017
  Transmission Date: 20190205
  Serious: Yes (Other)
  Sender: FDA-Public Use
  Company Number: FR-LUNDBECK-DKLU2055621

PATIENT
  Age: 8 Year
  Sex: Female

DRUGS (1)
  1. URBANYL [Suspect]
     Active Substance: CLOBAZAM
     Indication: INCORRECT DOSAGE ADMINISTERED
     Route: 048
     Dates: start: 20180807, end: 20180807

REACTIONS (2)
  - Somnolence [Recovered/Resolved]
  - Depressed level of consciousness [Recovered/Resolved]

NARRATIVE: CASE EVENT DATE: 20180807
